FAERS Safety Report 21417570 (Version 1)
Quarter: 2022Q4

REPORT INFORMATION
  Report Type: Spontaneous
  Country: US (occurrence: None)
  Receive Date: 20221005
  Receipt Date: 20221005
  Transmission Date: 20230113
  Serious: Yes (Hospitalization)
  Sender: FDA-Public Use
  Company Number: None

PATIENT
  Sex: Female

DRUGS (2)
  1. XOLAIR [Suspect]
     Active Substance: OMALIZUMAB
     Indication: Asthma
     Dosage: OTHER FREQUENCY : EVERY 28 DAYS;?
  2. XOLAIR [Suspect]
     Active Substance: OMALIZUMAB
     Dosage: OTHER FREQUENCY : EVERY 28 DAYS;?
     Route: 058

REACTIONS (1)
  - Hospitalisation [None]
